FAERS Safety Report 15129080 (Version 1)
Quarter: 2018Q3

REPORT INFORMATION
  Report Type: Spontaneous
  Country: US (occurrence: US)
  Receive Date: 20180711
  Receipt Date: 20180711
  Transmission Date: 20181010
  Serious: No
  Sender: FDA-Public Use
  Company Number: PHEH2018US026357

PATIENT
  Sex: Female

DRUGS (1)
  1. PATANASE [Suspect]
     Active Substance: OLOPATADINE HYDROCHLORIDE
     Indication: EAR DISORDER
     Route: 045

REACTIONS (3)
  - Nasal congestion [Unknown]
  - Rhinalgia [Unknown]
  - Paranasal sinus hyposecretion [Unknown]
